FAERS Safety Report 6602096-5 (Version None)
Quarter: 2010Q1

REPORT INFORMATION
  Report Type: 
  Country: None (occurrence: None)
  Receive Date: 20100225
  Receipt Date: 20100215
  Transmission Date: 20100710
  Serious: Yes (Death, Other)
  Sender: FDA-Public Use
  Company Number: PHHY2010DE09491

PATIENT
  Age: 53 Year
  Sex: Female

DRUGS (2)
  1. PAMIDRONATE DISODIUM [Suspect]
     Indication: METASTASES TO BONE
     Dosage: 90 MG EVERY 4 WEEKS
     Route: 042
  2. CHEMOTHERAPEUTICS NOS [Concomitant]

REACTIONS (13)
  - BONE DISORDER [None]
  - BONE OPERATION [None]
  - HYPOAESTHESIA [None]
  - JAW DISORDER [None]
  - MALIGNANT NEOPLASM PROGRESSION [None]
  - METASTASES TO BONE [None]
  - NERVE INJURY [None]
  - OSTEONECROSIS [None]
  - OSTEOSCLEROSIS [None]
  - PARAESTHESIA [None]
  - PERIODONTAL DISEASE [None]
  - TOOTH EXTRACTION [None]
  - WOUND DEHISCENCE [None]
